FAERS Safety Report 15003743 (Version 1)
Quarter: 2018Q2

REPORT INFORMATION
  Report Type: Spontaneous
  Country: DE (occurrence: DE)
  Receive Date: 20180613
  Receipt Date: 20180613
  Transmission Date: 20180711
  Serious: Yes (Other)
  Sender: FDA-Public Use
  Company Number: DE-ASTELLAS-2018US026465

PATIENT
  Sex: Female

DRUGS (2)
  1. BETMIGA [Suspect]
     Active Substance: MIRABEGRON
     Dosage: 75 MG/DAY OR 100 MG/DAY TWO TIMES A WEEK OR 100 MG/DAY EVERY SECOND DAY
     Route: 065
  2. BETMIGA [Suspect]
     Active Substance: MIRABEGRON
     Indication: URGE INCONTINENCE
     Route: 065

REACTIONS (4)
  - Drug effect incomplete [Unknown]
  - Product use issue [Unknown]
  - Off label use [Unknown]
  - Gastric cancer [Unknown]
